FAERS Safety Report 8319397-5 (Version None)
Quarter: 2012Q2

REPORT INFORMATION
  Report Type: 
  Country: None (occurrence: None)
  Receive Date: 20120427
  Receipt Date: 20120423
  Transmission Date: 20120825
  Serious: Yes (Death)
  Sender: FDA-Public Use
  Company Number: PHHY2012US035635

PATIENT
  Age: 59 Year
  Sex: Female

DRUGS (9)
  1. BUSPIRONE HCL [Suspect]
  2. PREDNISONE [Suspect]
  3. ACETAMINOPHEN AND HYDROCODONE BITARTRATE [Suspect]
  4. ATENOLOL [Suspect]
  5. ALPRAZOLAM [Suspect]
  6. HYDROXYCHLOROQUINE SULFATE [Suspect]
  7. ENALAPRIL MALEATE [Suspect]
  8. OMEPRAZOLE [Suspect]
  9. CARBAMAZEPINE [Suspect]

REACTIONS (1)
  - COMPLETED SUICIDE [None]
